FAERS Safety Report 19233037 (Version 15)
Quarter: 2024Q3

REPORT INFORMATION
  Report Type: Report from Study
  Country: DE (occurrence: DE)
  Receive Date: 20210507
  Receipt Date: 20240830
  Transmission Date: 20241017
  Serious: Yes (Other)
  Sender: ROCHE
  Company Number: DE-ROCHE-2367230

PATIENT
  Age: 37 Year
  Sex: Female
  Weight: 73.0 kg

DRUGS (17)
  1. NABIXIMOLS [Suspect]
     Active Substance: NABIXIMOLS
     Indication: Muscle spasticity
     Dosage: STATED ON 12-JUL-2019, 3-4 TIMES DAILY
     Route: 048
  2. NABIXIMOLS [Suspect]
     Active Substance: NABIXIMOLS
     Indication: Back pain
     Dosage: 5-7 TIMES DAILY
     Route: 048
  3. NABIXIMOLS [Suspect]
     Active Substance: NABIXIMOLS
     Indication: Arthralgia
     Route: 065
  4. COMIRNATY (TOZINAMERAN) [Suspect]
     Active Substance: TOZINAMERAN
     Indication: COVID-19 prophylaxis
     Dosage: STATED ON 29-APR-2021
     Route: 065
  5. COMIRNATY (TOZINAMERAN) [Suspect]
     Active Substance: TOZINAMERAN
     Route: 065
     Dates: start: 20210610
  6. SPIKEVAX [Suspect]
     Active Substance: CX-046684
     Indication: Product used for unknown indication
     Route: 065
  7. OCREVUS [Interacting]
     Active Substance: OCRELIZUMAB
     Indication: Relapsing-remitting multiple sclerosis
     Route: 042
     Dates: start: 20190415
  8. OCREVUS [Interacting]
     Active Substance: OCRELIZUMAB
     Indication: Secondary progressive multiple sclerosis
     Route: 042
     Dates: start: 20190429
  9. OCREVUS [Interacting]
     Active Substance: OCRELIZUMAB
     Route: 042
     Dates: start: 20200721
  10. OCREVUS [Interacting]
     Active Substance: OCRELIZUMAB
     Route: 042
     Dates: start: 20191022
  11. OCREVUS [Interacting]
     Active Substance: OCRELIZUMAB
     Route: 042
     Dates: start: 202101
  12. OCREVUS [Interacting]
     Active Substance: OCRELIZUMAB
     Route: 042
  13. OCREVUS [Interacting]
     Active Substance: OCRELIZUMAB
     Route: 042
     Dates: start: 20210803
  14. NOVALGIN (METAMIZOLE SODIUM) [Interacting]
     Active Substance: METAMIZOLE SODIUM
     Indication: Product used for unknown indication
     Route: 065
  15. CHOLECALCIFEROL [Concomitant]
     Active Substance: CHOLECALCIFEROL
     Route: 048
     Dates: start: 201810
  16. IBUPROFEN [Concomitant]
     Active Substance: IBUPROFEN
     Dosage: FREQUENCY TEXT:AS REQUIRED
  17. NABIXIMOLS [Concomitant]
     Active Substance: NABIXIMOLS
     Dosage: 3 TO 4 TIMES DAILY AND AS REQUIRED

REACTIONS (33)
  - Paraesthesia [Recovered/Resolved]
  - Drug ineffective [Unknown]
  - Multiple sclerosis [Recovered/Resolved]
  - Malaise [Recovered/Resolved]
  - Depression [Recovered/Resolved]
  - Tearfulness [Recovered/Resolved]
  - Asthenia [Recovered/Resolved]
  - Arthralgia [Recovering/Resolving]
  - Throat irritation [Recovered/Resolved]
  - Back pain [Recovering/Resolving]
  - Rhinorrhoea [Recovered/Resolved]
  - Fatigue [Recovered/Resolved]
  - Fall [Unknown]
  - Rib fracture [Recovered/Resolved]
  - Drug interaction [Unknown]
  - Sensation of foreign body [Recovered/Resolved]
  - Feeling hot [Recovered/Resolved]
  - Insomnia [Recovered/Resolved]
  - Nasopharyngitis [Recovered/Resolved]
  - Feeling cold [Recovered/Resolved]
  - Onychomycosis [Recovered/Resolved]
  - Urge incontinence [Unknown]
  - SARS-CoV-2 antibody test negative [Not Recovered/Not Resolved]
  - Gait disturbance [Not Recovered/Not Resolved]
  - Depressed mood [Recovered/Resolved]
  - Pain in extremity [Recovered/Resolved]
  - Hyperaesthesia [Recovered/Resolved]
  - Crying [Recovered/Resolved]
  - COVID-19 [Recovered/Resolved]
  - Sinusitis [Recovered/Resolved]
  - Muscle tightness [Recovering/Resolving]
  - Bruxism [Recovered/Resolved]
  - Off label use [Unknown]

NARRATIVE: CASE EVENT DATE: 20190415
